FAERS Safety Report 16855086 (Version 1)
Quarter: 2019Q3

REPORT INFORMATION
  Report Type: Report from Study
  Country: SE (occurrence: SE)
  Receive Date: 20190926
  Receipt Date: 20190926
  Transmission Date: 20191005
  Serious: Yes (Other)
  Sender: FDA-Public Use
  Company Number: SE-GLAXOSMITHKLINE-SE2019GSK171722

PATIENT
  Age: 75 Year
  Sex: Female
  Weight: 57 kg

DRUGS (1)
  1. ACYCLOVIR. [Suspect]
     Active Substance: ACYCLOVIR
     Indication: HERPES ZOSTER MENINGOENCEPHALITIS
     Dosage: 10 MG/KG, TID
     Route: 042

REACTIONS (9)
  - Acute kidney injury [Unknown]
  - Neuropsychiatric symptoms [Recovered/Resolved]
  - Condition aggravated [Recovered/Resolved]
  - Seizure [Unknown]
  - Blood albumin increased [Unknown]
  - Respiratory arrest [Unknown]
  - Blood creatinine abnormal [Unknown]
  - Confusional state [Recovered/Resolved]
  - Facial paresis [Unknown]
